FAERS Safety Report 22054383 (Version 1)
Quarter: 2023Q1

REPORT INFORMATION
  Report Type: Spontaneous
  Country: US (occurrence: US)
  Receive Date: 20230302
  Receipt Date: 20230302
  Transmission Date: 20230418
  Serious: No
  Sender: FDA-Public Use
  Company Number: US-NOVOPROD-964582

PATIENT
  Sex: Female

DRUGS (1)
  1. VICTOZA [Suspect]
     Active Substance: LIRAGLUTIDE
     Indication: Product used for unknown indication
     Dosage: 1.2 MG
     Route: 058
     Dates: start: 20201201

REACTIONS (5)
  - COVID-19 [Recovered/Resolved]
  - Amnesia [Unknown]
  - Illness [Not Recovered/Not Resolved]
  - Blood glucose increased [Recovered/Resolved]
  - Device failure [Unknown]
